FAERS Safety Report 6333437-4 (Version None)
Quarter: 2009Q3

REPORT INFORMATION
  Report Type: 
  Country: None (occurrence: None)
  Receive Date: 20090828
  Receipt Date: 20090820
  Transmission Date: 20100115
  Serious: Yes (Hospitalization)
  Sender: FDA-Public Use
  Company Number: PHHY2009RU34949

PATIENT
  Age: 55 Year
  Sex: Female

DRUGS (6)
  1. GLEEVEC [Suspect]
     Indication: CHRONIC MYELOID LEUKAEMIA
     Dosage: 400 MG/DAY
     Dates: start: 20090301
  2. ALLOPURINOL [Concomitant]
  3. OMEZ D [Concomitant]
  4. METOCLOPRAMIDE [Concomitant]
  5. CEFTRIAXONE [Concomitant]
  6. MYCOZORAL [Concomitant]

REACTIONS (4)
  - ALVEOLITIS FIBROSING [None]
  - DYSPNOEA [None]
  - FACE OEDEMA [None]
  - NAUSEA [None]
